FAERS Safety Report 6581402-4 (Version None)
Quarter: 2010Q1

REPORT INFORMATION
  Report Type: 
  Country: None (occurrence: None)
  Receive Date: 20100203
  Receipt Date: 20100127
  Transmission Date: 20100710
  Serious: Yes (Other)
  Sender: FDA-Public Use
  Company Number: URSO-2010-021

PATIENT
  Age: 49 Year
  Sex: Female

DRUGS (1)
  1. URSODEOXYCHOLIC ACID TABLETS [Suspect]
     Indication: HEPATITIS C
     Dosage: 600 MG; ORAL
     Route: 048
     Dates: start: 20081118, end: 20090101

REACTIONS (4)
  - ALANINE AMINOTRANSFERASE INCREASED [None]
  - ASPARTATE AMINOTRANSFERASE INCREASED [None]
  - NECK PAIN [None]
  - THYROIDITIS SUBACUTE [None]
